FAERS Safety Report 5784275-2 (Version None)
Quarter: 2008Q2

REPORT INFORMATION
  Report Type: 
  Country: None (occurrence: None)
  Receive Date: 20080619
  Receipt Date: 20080606
  Transmission Date: 20081010
  Serious: Yes (Hospitalization)
  Sender: FDA-Public Use
  Company Number: S08-FRA-02090-01

PATIENT
  Age: 90 Year
  Sex: Female

DRUGS (5)
  1. CITALOPRAM HYDROBROMIDE [Suspect]
     Dosage: 10 MG QD PO
     Route: 048
  2. KARDEGIC (ACETYLSALICYLATE LYSINE) [Suspect]
     Dosage: 160 MG QD
     Dates: start: 20080201, end: 20080502
  3. ATORVASTATIN CALCIUM [Concomitant]
  4. NITROGLYCERIN [Concomitant]
  5. UVEDOSE (COLCALCIFER9L) [Concomitant]

REACTIONS (10)
  - ANAEMIA [None]
  - BLOOD CREATININE INCREASED [None]
  - CARDIAC MURMUR [None]
  - DIVERTICULUM INTESTINAL HAEMORRHAGIC [None]
  - ELECTROCARDIOGRAM P WAVE BIPHASIC [None]
  - INTERNATIONAL NORMALISED RATIO INCREASED [None]
  - OXYGEN SATURATION DECREASED [None]
  - RECTAL HAEMORRHAGE [None]
  - RESPIRATORY RATE INCREASED [None]
  - THROMBOSIS [None]
